FAERS Safety Report 7105467-6 (Version None)
Quarter: 2010Q4

REPORT INFORMATION
  Report Type: 
  Country: None (occurrence: None)
  Receive Date: 20101110
  Receipt Date: 20101029
  Transmission Date: 20110411
  Serious: Yes (Other)
  Sender: FDA-Public Use
  Company Number: JPI-P-012843

PATIENT
  Age: 43 Year
  Sex: Female

DRUGS (12)
  1. XYREM [Suspect]
     Indication: DYSSOMNIA
     Dosage: 4.5 GM (2.25 GM, 2 IN 1 D), ORAL; ORAL, (4.5 GM FIRST DOSE/3.75 GM SECOND DOSE), ORAL
     Route: 048
     Dates: start: 20090901, end: 20090901
  2. XYREM [Suspect]
     Indication: INSOMNIA
     Dosage: 4.5 GM (2.25 GM, 2 IN 1 D), ORAL; ORAL, (4.5 GM FIRST DOSE/3.75 GM SECOND DOSE), ORAL
     Route: 048
     Dates: start: 20090901, end: 20090901
  3. XYREM [Suspect]
     Indication: SOMNOLENCE
     Dosage: 4.5 GM (2.25 GM, 2 IN 1 D), ORAL; ORAL, (4.5 GM FIRST DOSE/3.75 GM SECOND DOSE), ORAL
     Route: 048
     Dates: start: 20090901, end: 20090901
  4. XYREM [Suspect]
     Indication: DYSSOMNIA
     Dosage: 4.5 GM (2.25 GM, 2 IN 1 D), ORAL; ORAL, (4.5 GM FIRST DOSE/3.75 GM SECOND DOSE), ORAL
     Route: 048
     Dates: start: 20090911, end: 20090901
  5. XYREM [Suspect]
     Indication: INSOMNIA
     Dosage: 4.5 GM (2.25 GM, 2 IN 1 D), ORAL; ORAL, (4.5 GM FIRST DOSE/3.75 GM SECOND DOSE), ORAL
     Route: 048
     Dates: start: 20090911, end: 20090901
  6. XYREM [Suspect]
     Indication: SOMNOLENCE
     Dosage: 4.5 GM (2.25 GM, 2 IN 1 D), ORAL; ORAL, (4.5 GM FIRST DOSE/3.75 GM SECOND DOSE), ORAL
     Route: 048
     Dates: start: 20090911, end: 20090901
  7. XYREM [Suspect]
     Indication: DYSSOMNIA
     Dosage: 4.5 GM (2.25 GM, 2 IN 1 D), ORAL; ORAL, (4.5 GM FIRST DOSE/3.75 GM SECOND DOSE), ORAL
     Route: 048
     Dates: start: 20090929, end: 20091007
  8. XYREM [Suspect]
     Indication: INSOMNIA
     Dosage: 4.5 GM (2.25 GM, 2 IN 1 D), ORAL; ORAL, (4.5 GM FIRST DOSE/3.75 GM SECOND DOSE), ORAL
     Route: 048
     Dates: start: 20090929, end: 20091007
  9. XYREM [Suspect]
     Indication: SOMNOLENCE
     Dosage: 4.5 GM (2.25 GM, 2 IN 1 D), ORAL; ORAL, (4.5 GM FIRST DOSE/3.75 GM SECOND DOSE), ORAL
     Route: 048
     Dates: start: 20090929, end: 20091007
  10. XYREM [Suspect]
     Indication: DYSSOMNIA
     Dosage: 4.5 GM (2.25 GM, 2 IN 1 D), ORAL; ORAL, (4.5 GM FIRST DOSE/3.75 GM SECOND DOSE), ORAL
     Route: 048
     Dates: start: 20091013
  11. XYREM [Suspect]
     Indication: INSOMNIA
     Dosage: 4.5 GM (2.25 GM, 2 IN 1 D), ORAL; ORAL, (4.5 GM FIRST DOSE/3.75 GM SECOND DOSE), ORAL
     Route: 048
     Dates: start: 20091013
  12. XYREM [Suspect]
     Indication: SOMNOLENCE
     Dosage: 4.5 GM (2.25 GM, 2 IN 1 D), ORAL; ORAL, (4.5 GM FIRST DOSE/3.75 GM SECOND DOSE), ORAL
     Route: 048
     Dates: start: 20091013

REACTIONS (8)
  - AGITATION [None]
  - ANORECTAL INFECTION [None]
  - BLOOD PRESSURE INCREASED [None]
  - IRRITABILITY [None]
  - MENTAL IMPAIRMENT [None]
  - MIGRAINE [None]
  - POLYMENORRHOEA [None]
  - PROCEDURAL PAIN [None]
